FAERS Safety Report 6036521-8 (Version None)
Quarter: 2009Q1

REPORT INFORMATION
  Report Type: 
  Country: None (occurrence: None)
  Receive Date: 20090114
  Receipt Date: 20090108
  Transmission Date: 20090719
  Serious: Yes (Other)
  Sender: FDA-Public Use
  Company Number: GB-ASTRAZENECA-2008GB02230

PATIENT
  Age: 513 Month
  Sex: Male
  Weight: 72 kg

DRUGS (2)
  1. CRESTOR [Suspect]
     Indication: LOW DENSITY LIPOPROTEIN INCREASED
     Route: 048
     Dates: start: 20070801, end: 20071211
  2. CRESTOR [Suspect]
     Indication: MIXED HYPERLIPIDAEMIA
     Route: 048
     Dates: start: 20070801, end: 20071211

REACTIONS (2)
  - GRANULOMATOUS LIVER DISEASE [None]
  - HEPATIC ENZYME ABNORMAL [None]
